FAERS Safety Report 10979962 (Version 2)
Quarter: 2015Q2

REPORT INFORMATION
  Report Type: Spontaneous
  Country: US (occurrence: US)
  Receive Date: 20150402
  Receipt Date: 20150525
  Transmission Date: 20150821
  Serious: No
  Sender: FDA-Public Use
  Company Number: US-JNJFOC-20140205406

PATIENT
  Age: 55 Year
  Sex: Female

DRUGS (3)
  1. IMODIUM MULTI-SYMPTOM RELIEF [Suspect]
     Active Substance: DIMETHICONE\LOPERAMIDE HYDROCHLORIDE
     Indication: MUSCLE SPASMS
     Dosage: HALF TABLET
     Route: 048
     Dates: start: 19940101
  2. IMODIUM MULTI-SYMPTOM RELIEF [Suspect]
     Active Substance: DIMETHICONE\LOPERAMIDE HYDROCHLORIDE
     Indication: ABDOMINAL DISTENSION
     Dosage: HALF TABLET
     Route: 048
     Dates: start: 19940101
  3. IMODIUM MULTI-SYMPTOM RELIEF [Suspect]
     Active Substance: DIMETHICONE\LOPERAMIDE HYDROCHLORIDE
     Indication: LACTOSE INTOLERANCE
     Dosage: HALF TABLET
     Route: 048
     Dates: start: 19940101

REACTIONS (3)
  - Product use issue [Unknown]
  - Therapeutic response unexpected [Unknown]
  - Intentional product misuse [Unknown]
